FAERS Safety Report 5712104-1 (Version None)
Quarter: 2008Q2

REPORT INFORMATION
  Report Type: 
  Country: None (occurrence: None)
  Receive Date: 20080418
  Receipt Date: 20080225
  Transmission Date: 20081010
  Serious: Yes (Hospitalization)
  Sender: FDA-Public Use
  Company Number: TRP_05648_2008

PATIENT
  Sex: Female
  Weight: 65.7716 kg

DRUGS (4)
  1. RIBAVIRIN [Suspect]
     Indication: HEPATITIS C
     Dosage: 600 MG BID ORAL
     Route: 048
     Dates: start: 20080116, end: 20080211
  2. INFERGEN [Suspect]
     Indication: HEPATITIS C
     Dosage: 15 ?G QD SUBCUTANEOUS
     Route: 058
     Dates: start: 20080116, end: 20080211
  3. PROPRANOLOL [Concomitant]
  4. ZOCOR [Concomitant]

REACTIONS (7)
  - ALOPECIA [None]
  - BACTERIAL INFECTION [None]
  - CYSTITIS BACTERIAL [None]
  - PYREXIA [None]
  - RED BLOOD CELL COUNT DECREASED [None]
  - SKIN ODOUR ABNORMAL [None]
  - WHITE BLOOD CELL COUNT DECREASED [None]
